FAERS Safety Report 8167186-7 (Version None)
Quarter: 2012Q1

REPORT INFORMATION
  Report Type: 
  Country: None (occurrence: None)
  Receive Date: 20120227
  Receipt Date: 20120221
  Transmission Date: 20120608
  Serious: Yes (Life-Threatening)
  Sender: FDA-Public Use
  Company Number: US-UCBSA-034451

PATIENT
  Age: 70 Year
  Sex: Male
  Weight: 47.72 kg

DRUGS (21)
  1. MULTI-VITAMINS [Concomitant]
     Indication: VITAMIN SUPPLEMENTATION
  2. BOOST [Concomitant]
     Indication: CROHN'S DISEASE
  3. NEXIUM [Concomitant]
     Indication: PEPTIC ULCER
     Route: 048
  4. CALCIUM WITH VITAMIN D [Concomitant]
     Indication: OSTEOPOROSIS
     Dosage: 800MG (CALCIUM); 200 U(VITAMIN D)
  5. MULTI-VITAMINS [Concomitant]
     Indication: CROHN'S DISEASE
  6. DOXEPIN HCL [Concomitant]
     Indication: DEPRESSION
     Route: 048
  7. PREDNISONE [Concomitant]
     Indication: CROHN'S DISEASE
     Dates: start: 19991203, end: 20090609
  8. PREDNISONE [Concomitant]
     Dates: start: 20100214
  9. FIORINAL [Concomitant]
     Dosage: 1 CAPSULE EVERY4-6 HOURS
     Route: 048
  10. LOVAZA [Concomitant]
     Indication: MEDICAL DIET
  11. CIMZIA [Suspect]
     Indication: CROHN'S DISEASE
     Dosage: NEXT DOSE RECEIVED ON 05-APR-2011; 400
     Route: 058
     Dates: start: 20110222
  12. DOXAZOSIN [Concomitant]
     Indication: BENIGN PROSTATIC HYPERPLASIA
     Route: 048
  13. ASPIRIN [Concomitant]
     Indication: CORONARY ARTERY DISEASE
     Route: 048
  14. MESALAMINE [Concomitant]
     Route: 048
     Dates: start: 20040628
  15. ASPIRIN [Concomitant]
     Indication: CROHN'S DISEASE
  16. POTASSIUM CITRATE [Concomitant]
     Indication: CROHN'S DISEASE
  17. MESALAMINE [Concomitant]
     Indication: CROHN'S DISEASE
     Dates: start: 19991203, end: 20040628
  18. CALCIUM WITH VITAMIN D [Concomitant]
     Indication: CROHN'S DISEASE
     Dosage: 800MG (CALCIUM); 200 U(VITAMIN D)
  19. LOVAZA [Concomitant]
     Indication: CROHN'S DISEASE
  20. TOPROL-XL [Concomitant]
     Indication: TACHYCARDIA
     Route: 048
  21. BUDESONIDE [Concomitant]
     Indication: CROHN'S DISEASE
     Dates: start: 20090121

REACTIONS (1)
  - BLADDER CANCER RECURRENT [None]
